FAERS Safety Report 4836571-0 (Version None)
Quarter: 2005Q4

REPORT INFORMATION
  Report Type: 
  Country: None (occurrence: None)
  Receive Date: 20051121
  Receipt Date: 20051108
  Transmission Date: 20060501
  Serious: Yes (Other)
  Sender: FDA-Public Use
  Company Number: 2005153276

PATIENT
  Sex: Female
  Weight: 56.6996 kg

DRUGS (6)
  1. XALATAN [Suspect]
     Indication: GLAUCOMA
     Dosage: 1.5 MCG (1.5 MCG, QD INTERVAL: EVERY DAY), OPHTHALMIC
     Route: 047
     Dates: start: 19970101
  2. UNSPECIFIED HOMEOPATHIC ANTI-ANXIETY PILL (HOMEOPATIC PREPARATION) [Suspect]
     Indication: ANXIETY
  3. VITAMINS (VITAMINS) [Concomitant]
  4. SUPPLEMENTS (GENERAL NUTRIENTS) [Concomitant]
  5. CALCIJM (CALCIJM) [Concomitant]
  6. MAGNESIUM (MAGNESIUM) [Concomitant]

REACTIONS (15)
  - ACCIDENT [None]
  - CARDIAC VALVE DISEASE [None]
  - DIZZINESS [None]
  - DRY MOUTH [None]
  - EYE DISCHARGE [None]
  - EYE PAIN [None]
  - GLAUCOMA [None]
  - HEADACHE [None]
  - HEART RATE IRREGULAR [None]
  - INTERVERTEBRAL DISC PROTRUSION [None]
  - PERICARDIAL EFFUSION [None]
  - PSYCHOTIC DISORDER [None]
  - SCIATICA [None]
  - VISUAL ACUITY REDUCED [None]
  - VISUAL FIELD DEFECT [None]
